FAERS Safety Report 5900961-5 (Version None)
Quarter: 2008Q3

REPORT INFORMATION
  Report Type: 
  Country: None (occurrence: None)
  Receive Date: 20080929
  Receipt Date: 20080908
  Transmission Date: 20090109
  Serious: No
  Sender: FDA-Public Use
  Company Number: US-BAYER-200832694NA

PATIENT
  Age: 48 Year
  Sex: Male

DRUGS (2)
  1. LEVITRA [Suspect]
     Indication: ERECTILE DYSFUNCTION
     Dosage: UNIT DOSE: 20 MG
     Route: 048
     Dates: start: 20080801
  2. LEVITRA [Suspect]
     Dosage: UNIT DOSE: 20 MG
     Route: 048
     Dates: start: 20080701

REACTIONS (3)
  - ERECTILE DYSFUNCTION [None]
  - FLUSHING [None]
  - HEADACHE [None]
